FAERS Safety Report 6610088-5 (Version None)
Quarter: 2010Q1

REPORT INFORMATION
  Report Type: 
  Country: None (occurrence: None)
  Receive Date: 20100219
  Receipt Date: 20100205
  Transmission Date: 20100710
  Serious: Yes (Other)
  Sender: FDA-Public Use
  Company Number: 001755

PATIENT
  Age: 39 Year
  Sex: Female

DRUGS (1)
  1. LACOSAMIDE [Suspect]
     Dosage: 400 MG, MAXIUM LACOSAMIDE DOSE PER DAY 400MG)

REACTIONS (1)
  - PANCYTOPENIA [None]
